FAERS Safety Report 9711581 (Version 1)
Quarter: 2013Q4

REPORT INFORMATION
  Report Type: Report from Study
  Country: DE (occurrence: DE)
  Receive Date: 20131126
  Receipt Date: 20131126
  Transmission Date: 20140711
  Serious: Yes (Other)
  Sender: FDA-Public Use
  Company Number: DE-CELGENEUS-062-21880-13112165

PATIENT
  Age: 61 Year
  Sex: Male
  Weight: 82 kg

DRUGS (11)
  1. REVLIMID [Suspect]
     Indication: PLASMA CELL MYELOMA
     Dosage: 25 MILLIGRAM
     Route: 048
     Dates: start: 20101031
  2. REVLIMID [Suspect]
     Dosage: 25 MILLIGRAM
     Route: 048
     Dates: start: 20130703
  3. DEXAMETHASONE [Suspect]
     Indication: PLASMA CELL MYELOMA
     Route: 065
     Dates: start: 199607, end: 199609
  4. DEXAMETHASONE [Suspect]
     Route: 065
     Dates: start: 199701, end: 199701
  5. DEXAMETHASONE [Suspect]
     Route: 065
     Dates: start: 200111, end: 200111
  6. DEXAMETHASONE [Suspect]
     Route: 065
     Dates: start: 200905, end: 200912
  7. DEXAMETHASONE [Suspect]
     Route: 048
     Dates: start: 20101031, end: 20101121
  8. DEXAMETHASONE [Suspect]
     Route: 048
     Dates: start: 20110711, end: 20110801
  9. ASA [Concomitant]
     Indication: PRODUCT USED FOR UNKNOWN INDICATION
     Dosage: 100 MILLIGRAM
     Route: 048
     Dates: start: 2010
  10. ZOMETA [Concomitant]
     Indication: PRODUCT USED FOR UNKNOWN INDICATION
     Dosage: .0444 MILLIGRAM
     Route: 048
     Dates: start: 2010
  11. L-THYROXIN [Concomitant]
     Indication: PRODUCT USED FOR UNKNOWN INDICATION
     Dosage: 100 UG
     Route: 048
     Dates: start: 2010

REACTIONS (1)
  - Basal cell carcinoma [Recovered/Resolved]
